FAERS Safety Report 4833345-1 (Version None)
Quarter: 2005Q4

REPORT INFORMATION
  Report Type: 
  Country: None (occurrence: None)
  Receive Date: 20051117
  Receipt Date: 20051104
  Transmission Date: 20060501
  Serious: Yes (Death)
  Sender: FDA-Public Use
  Company Number: 2005152666

PATIENT
  Age: 82 Year
  Sex: Male

DRUGS (2)
  1. XALATAN [Suspect]
     Indication: GLAUCOMA
     Dosage: 1 DROP (1 DROP, 1 IN 1 D)_, OPHTHALMIC
     Route: 047
     Dates: start: 19980103, end: 20051022
  2. AMLODIPINE [Concomitant]

REACTIONS (2)
  - CARDIOPULMONARY FAILURE [None]
  - INFARCTION [None]
